FAERS Safety Report 17915552 (Version 1)
Quarter: 2020Q2

REPORT INFORMATION
  Report Type: Spontaneous
  Country: US (occurrence: US)
  Receive Date: 20200617
  Receipt Date: 20200617
  Transmission Date: 20200714
  Serious: No
  Sender: FDA-Public Use
  Company Number: None

PATIENT
  Age: 66 Year
  Sex: Female

DRUGS (29)
  1. GLUCOSAMINE CHONDROITIN TRIPLE ST [Concomitant]
  2. RENA-VITE VITAMINS [Concomitant]
  3. COENZYME Q-10 [Concomitant]
  4. VITAMIN -C [Concomitant]
  5. PAIN RELIEVER TAB PLUS [Concomitant]
  6. LIQUID IRON [Concomitant]
  7. MAGNESIUM OXIDE. [Concomitant]
     Active Substance: MAGNESIUM OXIDE
  8. GNP ALL DAY TAB ALLERGY [Concomitant]
  9. DAYTIME PE COUGH AND COLD [Concomitant]
  10. MUCUS RELIEF [Concomitant]
     Active Substance: GUAIFENESIN
  11. GUMMY VITAMIN C 250MG [Suspect]
     Active Substance: ASCORBIC ACID
     Indication: NUTRITIONAL SUPPLEMENTATION
  12. ASPIRIN. [Concomitant]
     Active Substance: ASPIRIN
  13. GNP EYE DROP SOL 0.05% OP [Concomitant]
  14. SENTRY MULTIVIT/MINERAL SUPPL [Concomitant]
  15. FERROUS SULFATE. [Concomitant]
     Active Substance: FERROUS SULFATE
  16. FOLIC ACID. [Concomitant]
     Active Substance: FOLIC ACID
  17. VITAMIN D 50 B-COMPLEX WITH B-12 [Concomitant]
  18. ONE A DAY WOMEN^S MULTIVITAMIN [Concomitant]
  19. IBUPROFEN. [Concomitant]
     Active Substance: IBUPROFEN
  20. BLADDER CONTROL PADS [Concomitant]
  21. EYE CARE VITAMINS [Concomitant]
  22. OMEGA-3 FISH OIL [Concomitant]
     Active Substance: FISH OIL\OMEGA-3 FATTY ACIDS
  23. MSM [Concomitant]
     Active Substance: DIMETHYL SULFONE
  24. URINARY PAIN RELIEF [Concomitant]
     Active Substance: PHENAZOPYRIDINE HYDROCHLORIDE
  25. LORATADINE. [Concomitant]
     Active Substance: LORATADINE
  26. POTASSIUM GLUCONATE [Concomitant]
     Active Substance: POTASSIUM GLUCONATE
  27. NAPROXEN 220MG TAB [Suspect]
     Active Substance: NAPROXEN
     Indication: PAIN
     Route: 048
  28. BIOTIN GUMMIES [Concomitant]
  29. CALCIUM CITRATE+VITAMIN D [Concomitant]

REACTIONS (8)
  - Pain [None]
  - Discomfort [None]
  - Eye irritation [None]
  - Product contamination [None]
  - Headache [None]
  - Abdominal pain [None]
  - Product odour abnormal [None]
  - Back pain [None]

NARRATIVE: CASE EVENT DATE: 20200616
